FAERS Safety Report 8553080-6 (Version None)
Quarter: 2012Q3

REPORT INFORMATION
  Report Type: 
  Country: None (occurrence: None)
  Receive Date: 20120731
  Receipt Date: 20120725
  Transmission Date: 20120928
  Serious: Yes (Other)
  Sender: FDA-Public Use
  Company Number: US-SANOFI-AVENTIS-2012SA053104

PATIENT

DRUGS (1)
  1. LANTUS [Suspect]
     Route: 058

REACTIONS (2)
  - BLOOD GLUCOSE INCREASED [None]
  - CARPAL TUNNEL SYNDROME [None]
